FAERS Safety Report 8524077-7 (Version None)
Quarter: 2012Q3

REPORT INFORMATION
  Report Type: 
  Country: None (occurrence: None)
  Receive Date: 20120720
  Receipt Date: 20120711
  Transmission Date: 20120928
  Serious: Yes (Hospitalization)
  Sender: FDA-Public Use
  Company Number: ZA-JNJFOC-20110312147

PATIENT
  Age: 73 Year
  Sex: Female

DRUGS (1)
  1. TRAMADOL HYDROCHLORIDE/ACETAMINOPHEN [Suspect]
     Indication: NERVE COMPRESSION
     Dosage: MORNING
     Route: 065

REACTIONS (7)
  - VERTIGO [None]
  - NAUSEA [None]
  - VOMITING [None]
  - HYPERHIDROSIS [None]
  - MALAISE [None]
  - LOSS OF CONSCIOUSNESS [None]
  - SYNCOPE [None]
